FAERS Safety Report 9625103 (Version 1)
Quarter: 2013Q4

REPORT INFORMATION
  Report Type: Spontaneous
  Country: US (occurrence: None)
  Receive Date: 20131015
  Receipt Date: 20131015
  Transmission Date: 20140711
  Serious: Yes (Life-Threatening, Hospitalization)
  Sender: FDA-Public Use
  Company Number: None

PATIENT
  Age: 42 Year
  Sex: Female
  Weight: 99.79 kg

DRUGS (1)
  1. PROFILNINE [Suspect]
     Indication: HAEMORRHAGE
     Dosage: 4520 UNITS, INTRAVENOUS
     Route: 042
     Dates: start: 20130914, end: 20130914

REACTIONS (8)
  - Epistaxis [None]
  - Rectal haemorrhage [None]
  - Abdominal pain [None]
  - Hypertension [None]
  - Tachycardia [None]
  - Pain [None]
  - Bradycardia [None]
  - Ischaemic stroke [None]
